FAERS Safety Report 18160460 (Version 3)
Quarter: 2020Q4

REPORT INFORMATION
  Report Type: Spontaneous
  Country: IT (occurrence: IT)
  Receive Date: 20200817
  Receipt Date: 20201013
  Transmission Date: 20210113
  Serious: Yes (Hospitalization)
  Sender: FDA-Public Use
  Company Number: IT-PFIZER INC-2020313758

PATIENT
  Age: 65 Year
  Sex: Female

DRUGS (5)
  1. ADRIBLASTINA [Suspect]
     Active Substance: DOXORUBICIN HYDROCHLORIDE
     Indication: DIFFUSE LARGE B-CELL LYMPHOMA
     Dosage: 76 MG, CYCLIC
     Route: 042
     Dates: start: 20200724, end: 20200724
  2. GRANISETRON [Concomitant]
     Active Substance: GRANISETRON
     Indication: DIFFUSE LARGE B-CELL LYMPHOMA
     Dosage: 3 MG
     Route: 042
     Dates: start: 20200724, end: 20200724
  3. VINCRISTINE [Concomitant]
     Active Substance: VINCRISTINE
     Indication: DIFFUSE LARGE B-CELL LYMPHOMA
     Dosage: 2 MG
     Route: 042
     Dates: start: 20200724, end: 20200724
  4. ENDOXAN-BAXTER [Concomitant]
     Active Substance: CYCLOPHOSPHAMIDE
     Indication: DIFFUSE LARGE B-CELL LYMPHOMA
     Dosage: 1140 MG
     Route: 042
     Dates: start: 20200724, end: 20200724
  5. METHYLPREDNISOLONE SODIUM SUCCINATE. [Concomitant]
     Active Substance: METHYLPREDNISOLONE SODIUM SUCCINATE
     Indication: DIFFUSE LARGE B-CELL LYMPHOMA
     Dosage: 80 MG
     Route: 042
     Dates: start: 20200724, end: 20200724

REACTIONS (7)
  - Oedema peripheral [Unknown]
  - Peripheral swelling [Recovering/Resolving]
  - Administration site extravasation [Recovering/Resolving]
  - Skin discolouration [Unknown]
  - Skin warm [Recovering/Resolving]
  - Erythema [Recovering/Resolving]
  - Medication error [Recovering/Resolving]

NARRATIVE: CASE EVENT DATE: 20200724
